FAERS Safety Report 8236483-9 (Version None)
Quarter: 2012Q1

REPORT INFORMATION
  Report Type: 
  Country: None (occurrence: None)
  Receive Date: 20120327
  Receipt Date: 20120320
  Transmission Date: 20120608
  Serious: Yes (Hospitalization)
  Sender: FDA-Public Use
  Company Number: US-BAYER-2011-064027

PATIENT
  Age: 29 Year
  Sex: Female
  Weight: 90.703 kg

DRUGS (3)
  1. YAZ [Suspect]
     Indication: ENDOMETRIOSIS
     Dosage: UNK
     Dates: start: 20090415, end: 20090728
  2. YASMIN [Suspect]
     Dosage: UNK
     Dates: start: 20080101
  3. YASMIN [Suspect]
     Indication: ENDOMETRIOSIS
     Dosage: UNK
     Dates: start: 20070829, end: 20080621

REACTIONS (9)
  - PULMONARY EMBOLISM [None]
  - WHEEZING [None]
  - GENERAL PHYSICAL HEALTH DETERIORATION [None]
  - PNEUMONIA [None]
  - DYSPNOEA [None]
  - FEAR [None]
  - ANXIETY [None]
  - CHEST PAIN [None]
  - EMOTIONAL DISTRESS [None]
